FAERS Safety Report 22172995 (Version 6)
Quarter: 2023Q4

REPORT INFORMATION
  Report Type: Spontaneous
  Country: US (occurrence: US)
  Receive Date: 20230404
  Receipt Date: 20231003
  Transmission Date: 20240110
  Serious: No
  Sender: FDA-Public Use
  Company Number: US-KARYOPHARM-2023KPT000587

PATIENT

DRUGS (17)
  1. XPOVIO [Suspect]
     Active Substance: SELINEXOR
     Indication: Plasma cell myeloma
     Dosage: 40 MG, WEEKLY
     Route: 048
     Dates: start: 20230120
  2. XPOVIO [Suspect]
     Active Substance: SELINEXOR
     Dosage: 80 MG, WEEKLY
     Route: 048
  3. ACYCLOVIR [Concomitant]
     Active Substance: ACYCLOVIR
  4. CITALOPRAM [Concomitant]
     Active Substance: CITALOPRAM HYDROBROMIDE
  5. DEXAMETHASONE [Concomitant]
     Active Substance: DEXAMETHASONE
  6. LACTULOSE [Concomitant]
     Active Substance: LACTULOSE
  7. GABAPENTIN [Concomitant]
     Active Substance: GABAPENTIN
  8. KYPROLIS [Concomitant]
     Active Substance: CARFILZOMIB
  9. LEVOTHYROXINE [Concomitant]
     Active Substance: LEVOTHYROXINE
  10. LORAZEPAM [Concomitant]
     Active Substance: LORAZEPAM
  11. MONTELUKAST SODIUM [Concomitant]
     Active Substance: MONTELUKAST SODIUM
  12. MORPHINE SULFATE [Concomitant]
     Active Substance: MORPHINE SULFATE
  13. NORCO [Concomitant]
     Active Substance: ACETAMINOPHEN\HYDROCODONE BITARTRATE
  14. ONDANSETRON [Concomitant]
     Active Substance: ONDANSETRON
  15. TAMSULOSIN [Concomitant]
     Active Substance: TAMSULOSIN
  16. TOPIRAMATE [Concomitant]
     Active Substance: TOPIRAMATE
  17. BACTRIM [Concomitant]
     Active Substance: SULFAMETHOXAZOLE\TRIMETHOPRIM

REACTIONS (8)
  - Urinary tract infection [Unknown]
  - Somnolence [Not Recovered/Not Resolved]
  - Hypotension [Unknown]
  - Diarrhoea [Recovered/Resolved]
  - Fatigue [Not Recovered/Not Resolved]
  - Decreased appetite [Not Recovered/Not Resolved]
  - Asthenia [Unknown]
  - Constipation [Unknown]

NARRATIVE: CASE EVENT DATE: 20230101
